FAERS Safety Report 9748921 (Version 2)
Quarter: 2013Q4

REPORT INFORMATION
  Report Type: Spontaneous
  Country: US (occurrence: US)
  Receive Date: 20131212
  Receipt Date: 20131212
  Transmission Date: 20140711
  Serious: Yes (Other)
  Sender: FDA-Public Use
  Company Number: US-INCYTE CORPORATION-2013IN001257

PATIENT
  Sex: 0

DRUGS (14)
  1. JAKAFI [Suspect]
     Indication: MYELOFIBROSIS
     Dosage: 15 MG, BID
     Route: 048
     Dates: start: 201305
  2. COUMADIN [Concomitant]
     Dosage: 1 DF, QD
     Route: 048
  3. IMDUR [Concomitant]
     Dosage: 1 TAB, EVERY EVENING  AND IN THE MORNING
     Route: 048
  4. LANOXIN [Concomitant]
  5. COREG [Concomitant]
  6. TRICOR [Concomitant]
  7. LASIX [Concomitant]
     Dosage: 1 DF, QD
     Route: 048
  8. POTASSIUM CHLORIDE [Concomitant]
     Dosage: 1 DF, QD, WITH FOOD
  9. FISH OIL [Concomitant]
     Dosage: 1 DF, TID
     Route: 048
  10. TYLENOL [Concomitant]
  11. ALTACE [Concomitant]
     Dosage: 1 DF, QD
     Route: 048
  12. CALTRATE [Concomitant]
     Dosage: 2 DF, BID
  13. DIGITEK [Concomitant]
     Dosage: 1 DF, QD
     Route: 048
  14. ISOSORBIDE DINITRATE [Concomitant]
     Dosage: 1 DF, QD
     Route: 048

REACTIONS (9)
  - Platelet count decreased [Unknown]
  - Dyspnoea [Unknown]
  - Fatigue [Unknown]
  - Asthenia [Unknown]
  - Splenomegaly [Unknown]
  - Chest pain [Unknown]
  - Contusion [Unknown]
  - Dizziness [Unknown]
  - Anaemia [Recovering/Resolving]
